FAERS Safety Report 18980459 (Version 2)
Quarter: 2021Q1

REPORT INFORMATION
  Report Type: Spontaneous
  Country: JP (occurrence: JP)
  Receive Date: 20210308
  Receipt Date: 20210315
  Transmission Date: 20210420
  Serious: Yes (Hospitalization)
  Sender: FDA-Public Use
  Company Number: JP-JNJFOC-20210308080

PATIENT
  Age: 85 Year
  Sex: Male

DRUGS (2)
  1. PREDNISOLONE. [Concomitant]
     Active Substance: PREDNISOLONE
     Indication: PROSTATE CANCER
     Route: 065
  2. ZYTIGA [Suspect]
     Active Substance: ABIRATERONE ACETATE
     Indication: PROSTATE CANCER
     Dosage: DOSE UNKNOWN
     Route: 048
     Dates: end: 20210223

REACTIONS (4)
  - Adrenal disorder [Recovering/Resolving]
  - Hypertension [Recovering/Resolving]
  - Hypokalaemia [Recovering/Resolving]
  - Pseudoaldosteronism [Recovering/Resolving]

NARRATIVE: CASE EVENT DATE: 20210223
